FAERS Safety Report 25768249 (Version 1)
Quarter: 2025Q3

REPORT INFORMATION
  Report Type: Spontaneous
  Country: US (occurrence: US)
  Receive Date: 20250905
  Receipt Date: 20250905
  Transmission Date: 20251021
  Serious: No
  Sender: DOMPE FARMACEUTICI
  Company Number: US-FARMAPROD-202506-1937

PATIENT
  Age: 71 Year
  Sex: Female

DRUGS (7)
  1. OXERVATE [Suspect]
     Active Substance: CENEGERMIN-BKBJ
     Indication: Neurotrophic keratopathy
     Route: 047
     Dates: start: 20250606
  2. OXERVATE [Suspect]
     Active Substance: CENEGERMIN-BKBJ
  3. PROBIOTICS NOS [Concomitant]
     Active Substance: PROBIOTICS NOS
  4. VITAMIN B12 [Concomitant]
     Active Substance: CYANOCOBALAMIN
  5. LEVOTHYROXINE SODIUM [Concomitant]
     Active Substance: LEVOTHYROXINE SODIUM
  6. TRIAMTERENE AND HYDROCHLOROTHIAZIDE [Concomitant]
     Active Substance: HYDROCHLOROTHIAZIDE\TRIAMTERENE
  7. LISINOPRIL [Concomitant]
     Active Substance: LISINOPRIL

REACTIONS (13)
  - Periorbital pain [Unknown]
  - Palpitations [Recovered/Resolved]
  - Dysgeusia [Recovered/Resolved]
  - Drug intolerance [Unknown]
  - Eye pain [Unknown]
  - Photophobia [Unknown]
  - Hordeolum [Unknown]
  - Pain [Unknown]
  - Discomfort [Unknown]
  - Eye swelling [Not Recovered/Not Resolved]
  - Ocular hyperaemia [Unknown]
  - Eyelid margin crusting [Unknown]
  - Eye discharge [Unknown]

NARRATIVE: CASE EVENT DATE: 20250607
